FAERS Safety Report 8611367-2 (Version None)
Quarter: 2012Q3

REPORT INFORMATION
  Report Type: 
  Country: None (occurrence: None)
  Receive Date: 20120822
  Receipt Date: 20120813
  Transmission Date: 20120928
  Serious: Yes (Hospitalization, Other)
  Sender: FDA-Public Use
  Company Number: US-ELI_LILLY_AND_COMPANY-US201205004251

PATIENT
  Age: 58 Year
  Sex: Female
  Weight: 60.317 kg

DRUGS (7)
  1. CYMBALTA [Suspect]
     Indication: DEPRESSION
     Dosage: 60 MG, QD
     Route: 048
     Dates: start: 20120420, end: 20120426
  2. CALCIUM [Concomitant]
  3. NASONEX [Concomitant]
  4. ASPIRIN [Concomitant]
  5. VITAMIN D [Concomitant]
  6. AMOXIL [Concomitant]
  7. ZINC SULFATE [Concomitant]

REACTIONS (13)
  - HAEMORRHAGE [None]
  - PELVIC PAIN [None]
  - HYPERSENSITIVITY [None]
  - PRURITUS [None]
  - INFLAMMATION [None]
  - SYNCOPE [None]
  - DRUG INEFFECTIVE [None]
  - HEAD INJURY [None]
  - BIPOLAR DISORDER [None]
  - ORTHOSTATIC HYPOTENSION [None]
  - ERYTHEMA [None]
  - MUSCULOSKELETAL PAIN [None]
  - ABDOMINAL PAIN UPPER [None]
